FAERS Safety Report 7626583-6 (Version None)
Quarter: 2011Q3

REPORT INFORMATION
  Report Type: 
  Country: None (occurrence: None)
  Receive Date: 20110721
  Receipt Date: 20110712
  Transmission Date: 20111222
  Serious: Yes (Life-Threatening)
  Sender: FDA-Public Use
  Company Number: FR-GLAXOSMITHKLINE-B0732436A

PATIENT
  Age: 20 Year
  Sex: Female

DRUGS (4)
  1. ALKERAN [Suspect]
     Indication: BONE MARROW TRANSPLANT
     Route: 042
     Dates: start: 20101201, end: 20101201
  2. CYTARABINE [Suspect]
     Indication: BONE MARROW TRANSPLANT
     Route: 042
     Dates: start: 20101201, end: 20101201
  3. BICNU [Suspect]
     Indication: BONE MARROW TRANSPLANT
     Route: 042
     Dates: start: 20101203, end: 20101201
  4. VEPESID [Suspect]
     Indication: BONE MARROW TRANSPLANT
     Route: 042
     Dates: start: 20101201, end: 20101201

REACTIONS (12)
  - SEPTIC SHOCK [None]
  - DISORIENTATION [None]
  - NYSTAGMUS [None]
  - ENCEPHALOPATHY [None]
  - RADIATION MUCOSITIS [None]
  - CONFUSIONAL STATE [None]
  - VISION BLURRED [None]
  - HYPOACUSIS [None]
  - RETINAL HAEMORRHAGE [None]
  - SOMNOLENCE [None]
  - DECREASED APPETITE [None]
  - BONE MARROW FAILURE [None]
